FAERS Safety Report 4521865-9 (Version None)
Quarter: 2004Q4

REPORT INFORMATION
  Report Type: 
  Country: None (occurrence: None)
  Receive Date: 20041206
  Receipt Date: 20041129
  Transmission Date: 20050328
  Serious: Yes (Death)
  Sender: FDA-Public Use
  Company Number: 2004US001360

PATIENT
  Age: 11 Month
  Sex: Female

DRUGS (11)
  1. PROTOPIC [Suspect]
     Indication: GRAFT VERSUS HOST DISEASE
     Dosage: TOPICAL
     Route: 061
     Dates: start: 20041016
  2. NIFEDIPINE [Concomitant]
  3. PENTAMIDINE (PENTAMIDINE) [Concomitant]
  4. CYCLOSPORINE [Concomitant]
  5. GANCICLOVIR SODIUM [Concomitant]
  6. CIPRO [Concomitant]
  7. MEROPENEM (MEROPENEM) [Concomitant]
  8. AMLODIPINE [Concomitant]
  9. AMBISOME [Concomitant]
  10. VANCOMYCIN [Concomitant]
  11. PANTOPRAZOLE SODIUM [Concomitant]

REACTIONS (4)
  - GASTROINTESTINAL HAEMORRHAGE [None]
  - HYPOVOLAEMIA [None]
  - IMMUNOSUPPRESSANT DRUG LEVEL INCREASED [None]
  - THERAPEUTIC AGENT TOXICITY [None]
